FAERS Safety Report 9162474 (Version 2)
Quarter: 2013Q1

REPORT INFORMATION
  Report Type: Spontaneous
  Country: FR (occurrence: FR)
  Receive Date: 20130314
  Receipt Date: 20130321
  Transmission Date: 20140127
  Serious: Yes (Hospitalization, Other)
  Sender: FDA-Public Use
  Company Number: FR-PFIZER INC-2013083678

PATIENT
  Age: 25 Year
  Sex: Male

DRUGS (20)
  1. TRIATEC [Suspect]
     Dosage: 5MG TWICE DAILY
     Route: 048
     Dates: end: 20130219
  2. CERTICAN [Suspect]
     Indication: LUNG TRANSPLANT
     Dosage: 2 MG DAILY
     Route: 048
  3. ADVAGRAF [Concomitant]
  4. ARAVA [Concomitant]
  5. CREON [Concomitant]
  6. EUROBIOL [Concomitant]
  7. PARIET [Concomitant]
  8. RENAGEL [Concomitant]
  9. FERO-GRAD [Concomitant]
  10. AZITHROMYCIN [Concomitant]
  11. TAHOR [Concomitant]
  12. KAYEXALATE [Concomitant]
  13. EFFEXOR [Concomitant]
  14. TIORFAN [Concomitant]
  15. SMECTA [Concomitant]
  16. EUPRESSYL [Concomitant]
  17. MUCOMYSTENDO [Concomitant]
  18. ATARAX [Concomitant]
  19. LANTUS [Concomitant]
  20. NOVORAPID [Concomitant]

REACTIONS (5)
  - Pneumonia bacterial [Unknown]
  - Laryngeal discomfort [Recovered/Resolved]
  - Face oedema [Recovered/Resolved]
  - Tongue oedema [Recovered/Resolved]
  - Lip oedema [Recovered/Resolved]
